FAERS Safety Report 16943311 (Version 1)
Quarter: 2019Q4

REPORT INFORMATION
  Report Type: Spontaneous
  Country: FR (occurrence: FR)
  Receive Date: 20191022
  Receipt Date: 20191022
  Transmission Date: 20200122
  Serious: Yes (Hospitalization)
  Sender: FDA-Public Use
  Company Number: FR-ABBVIE-19K-056-2971821-00

PATIENT
  Age: 43 Year
  Sex: Male

DRUGS (1)
  1. MAVIRET [Suspect]
     Active Substance: GLECAPREVIR\PIBRENTASVIR
     Indication: CHRONIC HEPATITIS C
     Dosage: 100 MG/40 MG
     Route: 048
     Dates: start: 20190627, end: 20190822

REACTIONS (2)
  - Insomnia [Not Recovered/Not Resolved]
  - Intentional self-injury [Not Recovered/Not Resolved]

NARRATIVE: CASE EVENT DATE: 20190905
